FAERS Safety Report 4527455-6 (Version None)
Quarter: 2004Q4

REPORT INFORMATION
  Report Type: 
  Country: None (occurrence: None)
  Receive Date: 20041215
  Receipt Date: 20041213
  Transmission Date: 20050328
  Serious: Yes (Hospitalization)
  Sender: FDA-Public Use
  Company Number: US-JNJFOC-20041203008

PATIENT
  Age: 60 Year
  Sex: Female

DRUGS (4)
  1. DOXIL [Suspect]
     Indication: OVARIAN CANCER
     Route: 042
  2. LISINOPRIL [Concomitant]
  3. HYDROCHLOROTHIAZIDE [Concomitant]
  4. ATENOLOL [Concomitant]
     Indication: HYPERTENSION

REACTIONS (2)
  - CEREBRAL ARTERITIS [None]
  - VASCULITIS CEREBRAL [None]
